FAERS Safety Report 19780458 (Version 7)
Quarter: 2022Q4

REPORT INFORMATION
  Report Type: Report from Study
  Country: FR (occurrence: FR)
  Receive Date: 20210902
  Receipt Date: 20221228
  Transmission Date: 20230112
  Serious: Yes (Hospitalization, Other)
  Sender: FDA-Public Use
  Company Number: FR-ROCHE-2874545

PATIENT
  Age: 61 Year
  Sex: Male
  Weight: 68 kg

DRUGS (10)
  1. PACLITAXEL [Suspect]
     Active Substance: PACLITAXEL
     Indication: Non-small cell lung cancer
     Dosage: UNK
     Route: 065
     Dates: start: 20191118, end: 20200224
  2. CARBOPLATIN [Suspect]
     Active Substance: CARBOPLATIN
     Indication: Non-small cell lung cancer
     Dosage: UNK
     Route: 065
     Dates: start: 20191118, end: 20200224
  3. ATEZOLIZUMAB [Suspect]
     Active Substance: ATEZOLIZUMAB
     Indication: Non-small cell lung cancer
     Dosage: 1200 MG, EVERY 3 WEEKS, MOST RECENT DOSE OF ATEZOLIZUMAB 1200 MG PRIOR TO AE/SAE: 28/DEC/2019
     Route: 042
     Dates: start: 20190715
  4. ATEZOLIZUMAB [Suspect]
     Active Substance: ATEZOLIZUMAB
     Dosage: 1200 MG, EVERY 3 WEEKS
     Dates: start: 20191228
  5. SMECTA [Concomitant]
     Active Substance: MONTMORILLONITE
     Dosage: UNK, 0.33 DAY
     Dates: start: 20191228, end: 20191230
  6. PANTOPRAZOLE [Concomitant]
     Active Substance: PANTOPRAZOLE
     Dosage: UNK
     Dates: start: 20191229
  7. PRIMPERAN [Concomitant]
     Active Substance: METOCLOPRAMIDE HYDROCHLORIDE
     Dosage: UNK, 1X/DAY
     Dates: start: 20191230, end: 20191231
  8. RACECADOTRIL [Concomitant]
     Active Substance: RACECADOTRIL
     Dosage: UNK, 0.5 DAY
     Dates: start: 20191230, end: 20191231
  9. DAFALGAN [Concomitant]
     Active Substance: ACETAMINOPHEN
     Dosage: UNK
     Dates: start: 20191229
  10. OXAZEPAM [Concomitant]
     Active Substance: OXAZEPAM
     Dosage: UNK, 0.5 DAY
     Dates: start: 20191228, end: 20191231

REACTIONS (7)
  - Bone marrow failure [Not Recovered/Not Resolved]
  - White blood cell count decreased [Recovered/Resolved]
  - Vomiting [Not Recovered/Not Resolved]
  - Anaemia [Recovered/Resolved]
  - Paraesthesia [Not Recovered/Not Resolved]
  - Diarrhoea [Not Recovered/Not Resolved]
  - Oedema peripheral [Recovering/Resolving]

NARRATIVE: CASE EVENT DATE: 20190916
